FAERS Safety Report 8401939-2 (Version None)
Quarter: 2012Q2

REPORT INFORMATION
  Report Type: 
  Country: None (occurrence: None)
  Receive Date: 20120601
  Receipt Date: 20120527
  Transmission Date: 20120825
  Serious: Yes (Other)
  Sender: FDA-Public Use
  Company Number: CZ-PFIZER INC-2012109335

PATIENT
  Age: 39 Year
  Sex: Male

DRUGS (3)
  1. BATRAFEN [Concomitant]
     Dosage: UNK
     Route: 061
  2. BELOSALIC [Concomitant]
     Dosage: UNK
     Route: 061
  3. XALATAN [Suspect]
     Indication: INTRAOCULAR PRESSURE INCREASED
     Dosage: UNK
     Route: 047
     Dates: end: 20120501

REACTIONS (3)
  - EYE IRRITATION [None]
  - SEBORRHOEIC DERMATITIS [None]
  - VITREOUS OPACITIES [None]
